FAERS Safety Report 9641691 (Version 1)
Quarter: 2013Q4

REPORT INFORMATION
  Report Type: Report from Study
  Country: US (occurrence: US)
  Receive Date: 20131023
  Receipt Date: 20131023
  Transmission Date: 20140711
  Serious: Yes (Hospitalization)
  Sender: FDA-Public Use
  Company Number: US-ABBVIE-13P-163-1158827-00

PATIENT
  Age: 45 Year
  Sex: Female

DRUGS (9)
  1. HUMIRA [Suspect]
     Indication: CROHN^S DISEASE
     Dates: start: 200807, end: 20131010
  2. HUMIRA [Suspect]
     Dates: start: 20131010
  3. HUMIRA [Suspect]
     Indication: CROHN^S DISEASE
  4. INDERAL [Concomitant]
     Indication: HYPERTENSION
  5. INDERAL [Concomitant]
     Indication: MIGRAINE
  6. KLONOPIN [Concomitant]
     Indication: MIGRAINE
  7. COLESTIPOL [Concomitant]
     Indication: HYPERCHLORHYDRIA
     Dosage: AT BEDTIME
     Dates: start: 201207
  8. IMURAN [Concomitant]
     Indication: PRODUCT USED FOR UNKNOWN INDICATION
     Dates: end: 20130917
  9. AZATHIOPRINE [Concomitant]
     Indication: PRODUCT USED FOR UNKNOWN INDICATION

REACTIONS (7)
  - Intestinal fistula [Not Recovered/Not Resolved]
  - Vaginal fistula [Not Recovered/Not Resolved]
  - Hyperchlorhydria [Not Recovered/Not Resolved]
  - Frequent bowel movements [Recovering/Resolving]
  - Abscess [Not Recovered/Not Resolved]
  - Crohn^s disease [Not Recovered/Not Resolved]
  - Clostridium difficile infection [Recovered/Resolved]
